FAERS Safety Report 5503839-4 (Version None)
Quarter: 2007Q4

REPORT INFORMATION
  Report Type: 
  Country: None (occurrence: None)
  Receive Date: 20071030
  Receipt Date: 20071008
  Transmission Date: 20080405
  Serious: Yes (Hospitalization)
  Sender: FDA-Public Use
  Company Number: 2007US002284

PATIENT
  Age: 27 Year
  Sex: Male

DRUGS (6)
  1. PROGRAF [Suspect]
     Indication: RENAL TRANSPLANT
     Dosage: 4 MG, BID, ORAL; 3 MG, BID, ORAL
     Route: 048
     Dates: start: 20041117, end: 20050621
  2. PROGRAF [Suspect]
     Indication: RENAL TRANSPLANT
     Dosage: 4 MG, BID, ORAL; 3 MG, BID, ORAL
     Route: 048
     Dates: start: 20050621
  3. IMURAN [Concomitant]
  4. ENALAPRIL MALEATE [Concomitant]
  5. PREDNISONE [Concomitant]
  6. PRILOSEC [Concomitant]

REACTIONS (2)
  - ADULT T-CELL LYMPHOMA/LEUKAEMIA [None]
  - DRUG LEVEL FLUCTUATING [None]
